FAERS Safety Report 23924766 (Version 1)
Quarter: 2024Q2

REPORT INFORMATION
  Report Type: Spontaneous
  Country: US (occurrence: US)
  Receive Date: 20240531
  Receipt Date: 20240531
  Transmission Date: 20240716
  Serious: No
  Sender: FDA-Public Use
  Company Number: US-TEVA-VS-3200360

PATIENT
  Sex: Female

DRUGS (1)
  1. VESTURA [Suspect]
     Active Substance: DROSPIRENONE\ETHINYL ESTRADIOL
     Indication: Product use in unapproved indication
     Route: 065
     Dates: start: 202402

REACTIONS (5)
  - Illness [Not Recovered/Not Resolved]
  - Product use in unapproved indication [Unknown]
  - Muscle spasms [Not Recovered/Not Resolved]
  - Haemorrhage [Unknown]
  - Pain [Not Recovered/Not Resolved]

NARRATIVE: CASE EVENT DATE: 20240501
